FAERS Safety Report 8168381-3 (Version None)
Quarter: 2012Q1

REPORT INFORMATION
  Report Type: 
  Country: None (occurrence: None)
  Receive Date: 20120227
  Receipt Date: 20120215
  Transmission Date: 20120608
  Serious: Yes (Hospitalization)
  Sender: FDA-Public Use
  Company Number: JP-MERCK-1202USA02842

PATIENT
  Age: 78 Year
  Sex: Male

DRUGS (5)
  1. PIOGLITAZONE HYDROCHLORIDE [Concomitant]
     Route: 065
     Dates: start: 20101201
  2. JANUVIA [Suspect]
     Indication: TYPE 2 DIABETES MELLITUS
     Route: 048
     Dates: start: 20110310
  3. MITIGLINIDE CALCIUM HYDRATE [Concomitant]
     Route: 065
     Dates: start: 20050601
  4. METFORMIN HYDROCHLORIDE [Concomitant]
     Route: 065
     Dates: start: 20060201
  5. MIGLITOL [Concomitant]
     Route: 065
     Dates: start: 20101001

REACTIONS (2)
  - HEAT ILLNESS [None]
  - WEIGHT DECREASED [None]
